FAERS Safety Report 5065137-5 (Version None)
Quarter: 2006Q3

REPORT INFORMATION
  Report Type: 
  Country: None (occurrence: None)
  Receive Date: 20060725
  Receipt Date: 20060706
  Transmission Date: 20061208
  Serious: Yes (Other)
  Sender: FDA-Public Use
  Company Number: CA200603002713

PATIENT
  Age: 57 Year
  Sex: Male

DRUGS (2)
  1. STRATTERA [Suspect]
     Indication: ATTENTION DEFICIT/HYPERACTIVITY DISORDER
     Dosage: SEE IMAGE
     Route: 048
     Dates: start: 20060201, end: 20060201
  2. EFFEXOR XR [Concomitant]

REACTIONS (3)
  - ARRHYTHMIA [None]
  - PALPITATIONS [None]
  - SUPRAVENTRICULAR EXTRASYSTOLES [None]
